FAERS Safety Report 16406292 (Version 1)
Quarter: 2019Q2

REPORT INFORMATION
  Report Type: Spontaneous
  Country: CA (occurrence: CA)
  Receive Date: 20190607
  Receipt Date: 20190607
  Transmission Date: 20190711
  Serious: Yes (Disabling)
  Sender: FDA-Public Use
  Company Number: CA-PFIZER INC-2019242407

PATIENT
  Age: 80 Year
  Sex: Male

DRUGS (6)
  1. JAMP ROSUVASTATIN [Concomitant]
     Dosage: UNK
  2. XALATAN [Suspect]
     Active Substance: LATANOPROST
     Indication: GLAUCOMA
     Dosage: 1 GTT, 1X/DAY
     Route: 047
  3. APO-LORAZEPAM [Concomitant]
     Active Substance: LORAZEPAM
     Dosage: UNK
  4. JAMP AMLODIPINE [Concomitant]
     Dosage: UNK
  5. TEVA EZETIMIBE [Concomitant]
     Dosage: UNK
  6. ASA [Concomitant]
     Active Substance: ASPIRIN
     Dosage: UNK

REACTIONS (4)
  - Cerebrovascular accident [Recovering/Resolving]
  - Impaired quality of life [Recovering/Resolving]
  - Visual impairment [Recovering/Resolving]
  - Diplopia [Recovering/Resolving]
